FAERS Safety Report 5080737-4 (Version None)
Quarter: 2006Q3

REPORT INFORMATION
  Report Type: 
  Country: None (occurrence: None)
  Receive Date: 20060815
  Receipt Date: 20060814
  Transmission Date: 20061208
  Serious: Yes (Hospitalization)
  Sender: FDA-Public Use
  Company Number: CH-MERCK-0608CHE00009

PATIENT
  Age: 57 Year
  Sex: Female

DRUGS (3)
  1. ZOCOR [Suspect]
     Route: 048
     Dates: start: 20060701, end: 20060701
  2. ASPIRIN [Concomitant]
     Route: 048
     Dates: start: 20060701
  3. PANTOPRAZOLE SODIUM [Concomitant]
     Route: 048
     Dates: start: 20060701

REACTIONS (3)
  - ANGIONEUROTIC OEDEMA [None]
  - BRONCHOSPASM [None]
  - TYPE III IMMUNE COMPLEX MEDIATED REACTION [None]
